FAERS Safety Report 18262558 (Version 1)
Quarter: 2020Q3

REPORT INFORMATION
  Report Type: Spontaneous
  Country: US (occurrence: US)
  Receive Date: 20200914
  Receipt Date: 20200914
  Transmission Date: 20201103
  Serious: No
  Sender: FDA-Public Use
  Company Number: US-JNJFOC-20200911596

PATIENT
  Age: 6 Decade
  Sex: Female

DRUGS (5)
  1. REVLIMID [Concomitant]
     Active Substance: LENALIDOMIDE
     Indication: PLASMA CELL MYELOMA
     Dates: start: 201401
  2. XARELTO [Suspect]
     Active Substance: RIVAROXABAN
     Indication: PRODUCT USED FOR UNKNOWN INDICATION
     Route: 048
  3. REVLIMID [Concomitant]
     Active Substance: LENALIDOMIDE
     Dosage: 15?20 MG
     Dates: start: 201402
  4. REVLIMID [Concomitant]
     Active Substance: LENALIDOMIDE
     Dates: start: 201506
  5. REVLIMID [Concomitant]
     Active Substance: LENALIDOMIDE
     Dates: start: 20160726

REACTIONS (1)
  - Epistaxis [Unknown]
